FAERS Safety Report 14673527 (Version 3)
Quarter: 2018Q2

REPORT INFORMATION
  Report Type: Spontaneous
  Country: TW (occurrence: TW)
  Receive Date: 20180323
  Receipt Date: 20180502
  Transmission Date: 20180711
  Serious: Yes (Hospitalization, Other)
  Sender: FDA-Public Use
  Company Number: TW-GLENMARK PHARMACEUTICALS-2018GMK033412

PATIENT
  Age: 63 Year
  Sex: Male
  Weight: 60.9 kg

DRUGS (8)
  1. DORIPENEM. [Concomitant]
     Active Substance: DORIPENEM
     Indication: ENTEROCOCCAL INFECTION
     Dosage: UNK
     Route: 065
  2. LINEZOLID. [Suspect]
     Active Substance: LINEZOLID
     Indication: ENTEROCOCCAL INFECTION
     Dosage: 600 MG, BID (EVERY 12 HOURS)
     Route: 042
  3. DAPTOMYCIN. [Concomitant]
     Active Substance: DAPTOMYCIN
     Indication: ENDOCARDITIS
     Dosage: 10 MG/KG, UNK
     Route: 065
  4. GENTAMICIN. [Concomitant]
     Active Substance: GENTAMICIN
     Indication: ENTEROCOCCAL INFECTION
     Dosage: UNK
     Route: 065
  5. DORIPENEM. [Concomitant]
     Active Substance: DORIPENEM
     Indication: SEPTIC SHOCK
     Dosage: 10 MG/KG, UNK
     Route: 065
  6. LINEZOLID. [Suspect]
     Active Substance: LINEZOLID
     Dosage: 600 MG, QD
     Route: 042
  7. MEROPENEM                          /01250502/ [Concomitant]
     Active Substance: MEROPENEM
     Indication: KLEBSIELLA INFECTION
     Dosage: UNK
     Route: 065
  8. VITAMIN B1 [Concomitant]
     Active Substance: THIAMINE HYDROCHLORIDE
     Indication: NUTRITIONAL SUPPLEMENTATION
     Dosage: UNK
     Route: 065

REACTIONS (3)
  - Drug level increased [Recovered/Resolved]
  - Lactic acidosis [Recovered/Resolved]
  - Septic shock [Recovered/Resolved]
